FAERS Safety Report 13181675 (Version 2)
Quarter: 2017Q1

REPORT INFORMATION
  Report Type: Other
  Country: US (occurrence: US)
  Receive Date: 20170202
  Receipt Date: 20170301
  Transmission Date: 20170428
  Serious: No
  Sender: FDA-Public Use
  Company Number: US-SHIRE-US201702255

PATIENT
  Age: 71 Year
  Sex: Female
  Weight: 53.52 kg

DRUGS (3)
  1. NIFEDIPINE. [Concomitant]
     Active Substance: NIFEDIPINE
     Indication: SCLERODERMA
     Dosage: 30 MG, 1X/DAY:QD
     Route: 048
  2. XIIDRA [Suspect]
     Active Substance: LIFITEGRAST
     Indication: DRY EYE
     Dosage: 1 GTT (BOTH EYES), 2X/DAY:BID
     Route: 047
     Dates: start: 20170118
  3. RESTASIS [Concomitant]
     Active Substance: CYCLOSPORINE
     Indication: DRY EYE
     Dosage: UNK, UNKNOWN
     Route: 047

REACTIONS (1)
  - Instillation site pain [Not Recovered/Not Resolved]

NARRATIVE: CASE EVENT DATE: 20170118
